FAERS Safety Report 4844155-3 (Version None)
Quarter: 2005Q4

REPORT INFORMATION
  Report Type: 
  Country: None (occurrence: None)
  Receive Date: 20051202
  Receipt Date: 20051024
  Transmission Date: 20060501
  Serious: Yes (Hospitalization)
  Sender: FDA-Public Use
  Company Number: FR-BRISTOL-MYERS SQUIBB COMPANY-13158134

PATIENT
  Age: 81 Year
  Sex: Male

DRUGS (3)
  1. COAPROVEL TABS [Suspect]
     Indication: HYPERTENSION
     Route: 048
     Dates: start: 20040401, end: 20050920
  2. FLECAINIDE ACETATE [Concomitant]
     Dates: start: 20020301
  3. FENOFIBRATE [Concomitant]

REACTIONS (2)
  - PANCREATITIS ACUTE [None]
  - PLEURAL EFFUSION [None]
